FAERS Safety Report 5119143-2 (Version None)
Quarter: 2006Q3

REPORT INFORMATION
  Report Type: 
  Country: None (occurrence: None)
  Receive Date: 20060929
  Receipt Date: 20060929
  Transmission Date: 20061208
  Serious: Yes (Hospitalization)
  Sender: FDA-Public Use
  Company Number: None

PATIENT
  Age: 81 Year
  Sex: Male
  Weight: 112 kg

DRUGS (18)
  1. WARFARIN SODIUM [Suspect]
     Indication: ATRIAL FIBRILLATION
     Dosage: 5 MG DAILY PO
     Route: 048
  2. GATIFLOXACIN [Suspect]
     Indication: INFECTION
     Dosage: 400 MG DAILY PO
     Route: 048
     Dates: start: 20050405, end: 20050411
  3. PROMETHAZINE [Concomitant]
  4. TEMAZEPAM [Concomitant]
  5. GUAIFENESIN [Concomitant]
  6. . [Concomitant]
  7. PHENYTOIN [Concomitant]
  8. ASPIRIN [Concomitant]
  9. CAPTOPRIL [Concomitant]
  10. LASIX [Concomitant]
  11. SPIRONOLOACTONE [Concomitant]
  12. ZANTAC [Concomitant]
  13. NTG SL [Concomitant]
  14. METOLAZONE [Concomitant]
  15. LORATADINE [Concomitant]
  16. SYNTHROID [Concomitant]
  17. ISOSORBIDE DINITRATE [Concomitant]
  18. IPRATROPIUM INHALER [Concomitant]

REACTIONS (3)
  - ASTHENIA [None]
  - INTERNATIONAL NORMALISED RATIO INCREASED [None]
  - RECTAL HAEMORRHAGE [None]
